FAERS Safety Report 4789451-3 (Version None)
Quarter: 2005Q4

REPORT INFORMATION
  Report Type: 
  Country: None (occurrence: None)
  Receive Date: 20051004
  Receipt Date: 20051004
  Transmission Date: 20060501
  Serious: Yes (Life-Threatening)
  Sender: FDA-Public Use
  Company Number: None

PATIENT
  Sex: Female

DRUGS (9)
  1. HUMULIN 70/30 [Suspect]
     Indication: DIABETES MELLITUS INSULIN-DEPENDENT
     Dosage: 35 UNITS SQ BID
     Route: 058
  2. METFORMIN [Suspect]
     Indication: DIABETES MELLITUS INSULIN-DEPENDENT
     Dosage: 500MG PO BID
     Route: 048
  3. PHENOBARBITAL TAB [Concomitant]
  4. ALBUTEROL [Concomitant]
  5. CARBAMAZEPINE [Concomitant]
  6. FLUTICASONE/SALMETEROL [Concomitant]
  7. GABAPENTIN [Concomitant]
  8. METHADONE [Concomitant]
  9. SERTRALINE HCL [Concomitant]

REACTIONS (2)
  - HYPERGLYCAEMIA [None]
  - TREATMENT NONCOMPLIANCE [None]
